FAERS Safety Report 7528642-5 (Version None)
Quarter: 2011Q2

REPORT INFORMATION
  Report Type: 
  Country: None (occurrence: None)
  Receive Date: 20110531
  Receipt Date: 20110518
  Transmission Date: 20111010
  Serious: Yes (Death, Hospitalization, Other)
  Sender: FDA-Public Use
  Company Number: ACO_24147_2011

PATIENT
  Age: 67 Year
  Sex: Female

DRUGS (1)
  1. AMPYRA [Suspect]
     Indication: PRODUCT USED FOR UNKNOWN INDICATION
     Dosage: 10 MG, BID
     Dates: start: 20100513

REACTIONS (14)
  - METASTASES TO BONE [None]
  - URINARY TRACT INFECTION [None]
  - NERVOUS SYSTEM DISORDER [None]
  - LETHARGY [None]
  - RESPIRATORY FAILURE [None]
  - METASTATIC NEOPLASM [None]
  - UNRESPONSIVE TO STIMULI [None]
  - SEPSIS [None]
  - HAEMOGLOBIN DECREASED [None]
  - BRONCHITIS [None]
  - HYPONATRAEMIA [None]
  - PULMONARY CONGESTION [None]
  - PNEUMONIA [None]
  - TACHYCARDIA [None]
